FAERS Safety Report 8006246-8 (Version None)
Quarter: 2011Q4

REPORT INFORMATION
  Report Type: 
  Country: None (occurrence: None)
  Receive Date: 20111226
  Receipt Date: 20111212
  Transmission Date: 20120403
  Serious: Yes (Hospitalization, Other)
  Sender: FDA-Public Use
  Company Number: US-ELI_LILLY_AND_COMPANY-US201006002512

PATIENT
  Sex: Female

DRUGS (30)
  1. FORTEO [Suspect]
     Dosage: 20 UG, QD
     Route: 058
  2. ICAPS [Concomitant]
  3. ALIGN [Concomitant]
  4. FORTEO [Suspect]
     Dosage: 20 UG, QD
     Dates: start: 20100301
  5. ADVAIR DISKUS 100/50 [Concomitant]
     Dosage: UNK, 2/D
     Route: 055
  6. POTASSIUM [Concomitant]
     Dosage: 99 MG, DAILY (1/D)
  7. VITAMIN TAB [Concomitant]
     Dosage: UNK, DAILY (1/D)
  8. FORTEO [Suspect]
     Indication: OSTEOPOROSIS
     Dosage: 20 UG, DAILY (1/D)
     Route: 058
     Dates: start: 20100101, end: 20100501
  9. FORTEO [Suspect]
     Dosage: 20 UG, DAILY (1/D)
     Route: 058
  10. GLUCOSAMINE CHONDROITIN [Concomitant]
  11. MSM [Concomitant]
     Dosage: UNK, 3/D
  12. MAGNESIUM [Concomitant]
  13. LEVOTHYROXINE SODIUM [Concomitant]
  14. CELNIUM [Concomitant]
     Dosage: 30 MG, DAILY (1/D)
  15. ACIDOPHILUS [Concomitant]
     Dosage: 10 MG, DAILY (1/D)
  16. LUTEIN [Concomitant]
  17. CLARINEX [Concomitant]
  18. COENZYME [Concomitant]
     Dosage: 50 MG, DAILY (1/D)
  19. CALCIUM [Concomitant]
  20. VENTOLIN HFA [Concomitant]
     Dosage: UNK, AS NEEDED
  21. GOLD SEAL ANTISEPTIC POWDER [Concomitant]
  22. ECHINACEA /01323501/ [Concomitant]
  23. PROAIR HFA [Concomitant]
  24. VITAMIN C [Concomitant]
     Dosage: 1000 MG, 3/D
  25. VITAMIN B COMPLEX CAP [Concomitant]
     Dosage: UNK, DAILY (1/D)
  26. VITAMIN D [Concomitant]
  27. FORTEO [Suspect]
     Dosage: 20 UG, QD
     Route: 058
  28. NEXIUM [Concomitant]
     Dosage: 40 MG, UNK
  29. ZETIA [Concomitant]
     Dosage: 10 MG, UNK
  30. CLARITIN [Concomitant]
     Dosage: UNK, AS NEEDED

REACTIONS (13)
  - FALL [None]
  - UPPER LIMB FRACTURE [None]
  - INJECTION SITE HAEMORRHAGE [None]
  - BURSA DISORDER [None]
  - HIP FRACTURE [None]
  - DEHYDRATION [None]
  - VIRAL INFECTION [None]
  - CHEST PAIN [None]
  - NASOPHARYNGITIS [None]
  - DIARRHOEA [None]
  - VOMITING [None]
  - BONE PAIN [None]
  - DISCOMFORT [None]
